FAERS Safety Report 18474229 (Version 15)
Quarter: 2023Q4

REPORT INFORMATION
  Report Type: Spontaneous
  Country: US (occurrence: US)
  Receive Date: 20201106
  Receipt Date: 20231024
  Transmission Date: 20240110
  Serious: No
  Sender: FDA-Public Use
  Company Number: US-PFIZER INC-2020428443

PATIENT
  Age: 71 Year
  Sex: Female
  Weight: 67.12 kg

DRUGS (2)
  1. EUCRISA [Suspect]
     Active Substance: CRISABOROLE
     Indication: Eczema
     Dosage: 1 G, 2X/DAY (APPLY 1G TOPICALLY TWICE DAILY)
     Route: 061
  2. EUCRISA [Suspect]
     Active Substance: CRISABOROLE
     Indication: Dermatitis
     Dosage: UNK, 2X/DAY (TWICE DAILY AS NEEDED)
     Route: 061

REACTIONS (3)
  - Osteoarthritis [Unknown]
  - Rash [Unknown]
  - Mental disorder [Unknown]

NARRATIVE: CASE EVENT DATE: 20200101
